FAERS Safety Report 9034432 (Version 3)
Quarter: 2014Q2

REPORT INFORMATION
  Report Type: Spontaneous
  Country: JP (occurrence: None)
  Receive Date: 20130114
  Receipt Date: 20140408
  Transmission Date: 20141212
  Serious: Yes (Hospitalization, Other)
  Sender: FDA-Public Use
  Company Number: ADR-2013-00036

PATIENT
  Age: 55 Year
  Sex: Male

DRUGS (3)
  1. GABALON [Suspect]
     Indication: HEAD INJURY
     Dosage: 160 MCG/DAY
     Dates: start: 20100827
  2. FIRSTCIN [Concomitant]
  3. MUCODYNE [Concomitant]

REACTIONS (2)
  - Pneumonia aspiration [None]
  - Delusion [None]
